FAERS Safety Report 7700664-0 (Version None)
Quarter: 2011Q3

REPORT INFORMATION
  Report Type: 
  Country: None (occurrence: None)
  Receive Date: 20110822
  Receipt Date: 20110822
  Transmission Date: 20111222
  Serious: No
  Sender: FDA-Public Use
  Company Number: None

PATIENT
  Age: 75 Year
  Sex: Female
  Weight: 68.946 kg

DRUGS (1)
  1. FLUZONE [Suspect]
     Indication: INFLUENZA
     Dates: start: 20110819, end: 20110819

REACTIONS (3)
  - CHILLS [None]
  - MYALGIA [None]
  - FATIGUE [None]
